FAERS Safety Report 9842010 (Version 2)
Quarter: 2014Q1

REPORT INFORMATION
  Report Type: Spontaneous
  Country: US (occurrence: US)
  Receive Date: 20140124
  Receipt Date: 20140206
  Transmission Date: 20141002
  Serious: Yes (Hospitalization)
  Sender: FDA-Public Use
  Company Number: US-BAXTER-2014BAX002729

PATIENT
  Sex: Female

DRUGS (4)
  1. DIANEAL LOW CALCIUM [Suspect]
     Indication: PERITONEAL DIALYSIS
     Dosage: 2 BAGS
     Route: 033
     Dates: start: 2012
  2. DIANEAL LOW CALCIUM [Suspect]
     Indication: PERITONEAL DIALYSIS
     Dosage: 2 BAGS
     Route: 033
     Dates: start: 2012
  3. PERCOCET [OXYCODONE HYDROCHLORIDE,PARACETAMOL] [Suspect]
     Indication: SCIATICA
     Route: 048
     Dates: start: 20131219, end: 20131219
  4. VISTARIL [Suspect]
     Indication: INSOMNIA
     Dates: start: 201312, end: 201312

REACTIONS (4)
  - Sciatica [Recovering/Resolving]
  - Insomnia [Recovered/Resolved]
  - Hallucination [Recovered/Resolved]
  - Anterograde amnesia [Recovered/Resolved]
